FAERS Safety Report 8107954-0 (Version None)
Quarter: 2011Q4

REPORT INFORMATION
  Report Type: 
  Country: None (occurrence: None)
  Receive Date: 20111227
  Receipt Date: 20110921
  Transmission Date: 20120403
  Serious: No
  Sender: FDA-Public Use
  Company Number: PHEH2011US04975

PATIENT
  Age: 36 Year
  Sex: Female

DRUGS (6)
  1. FUROSEMIDE [Concomitant]
  2. PREDNISOLONE [Concomitant]
  3. CYCLOBENZAPRINE [Concomitant]
  4. GILENYA [Suspect]
     Indication: MULTIPLE SCLEROSIS
     Dosage: 0.5 MG, QD, ORAL
     Route: 048
     Dates: start: 20110808
  5. OXYCARBAZINE (OXYCARBAZINE) [Concomitant]
  6. FAMOTIDINE [Concomitant]

REACTIONS (3)
  - HYPOAESTHESIA [None]
  - FATIGUE [None]
  - ASTHENIA [None]
